FAERS Safety Report 8164097-8 (Version None)
Quarter: 2012Q1

REPORT INFORMATION
  Report Type: 
  Country: None (occurrence: None)
  Receive Date: 20120224
  Receipt Date: 20120222
  Transmission Date: 20120608
  Serious: Yes (Other)
  Sender: FDA-Public Use
  Company Number: CA-AMGEN-CANSP2011064280

PATIENT
  Age: 66 Year
  Sex: Female

DRUGS (9)
  1. ENBREL [Suspect]
     Dosage: 50 UNK, QWK
     Route: 058
     Dates: start: 20111101, end: 20111226
  2. VITAMIN D [Concomitant]
  3. CORTISONE ACETATE [Concomitant]
  4. ENALAPRIL MALEATE [Concomitant]
  5. ASPIRIN [Concomitant]
  6. FOLIC ACID [Concomitant]
  7. ENBREL [Suspect]
     Indication: RHEUMATOID ARTHRITIS
     Dosage: 50 MG, QWK
     Dates: start: 20110805
  8. METHOTREXATE [Concomitant]
     Indication: RHEUMATOID ARTHRITIS
     Dosage: 25 UNK, QWK
     Dates: start: 20100801
  9. PREDNISONE TAB [Concomitant]
     Indication: RHEUMATOID ARTHRITIS
     Dosage: 7.5 UNK, UNK
     Route: 048
     Dates: start: 20100801

REACTIONS (8)
  - FATIGUE [None]
  - EXTRASYSTOLES [None]
  - LIVER FUNCTION TEST ABNORMAL [None]
  - CARDIAC DISORDER [None]
  - VERTIGO [None]
  - INSOMNIA [None]
  - AMNESIA [None]
  - FOOD CRAVING [None]
